FAERS Safety Report 16914159 (Version 13)
Quarter: 2019Q4

REPORT INFORMATION
  Report Type: Report from Study
  Country: MX (occurrence: MX)
  Receive Date: 20191014
  Receipt Date: 20191220
  Transmission Date: 20200122
  Serious: Yes (Hospitalization)
  Sender: FDA-Public Use
  Company Number: MX-EISAI MEDICAL RESEARCH-EC-2019-063592

PATIENT
  Age: 53 Year
  Sex: Female
  Weight: 69.4 kg

DRUGS (5)
  1. PEMBROLIZUMAB. [Suspect]
     Active Substance: PEMBROLIZUMAB
     Route: 041
     Dates: start: 20191113
  2. LENVATINIB [Suspect]
     Active Substance: LENVATINIB
     Route: 065
     Dates: start: 20191007
  3. LENVATINIB [Suspect]
     Active Substance: LENVATINIB
     Indication: NON-SMALL CELL LUNG CANCER METASTATIC
     Route: 048
     Dates: start: 20190924, end: 20191006
  4. LENVATINIB [Suspect]
     Active Substance: LENVATINIB
     Indication: NON-SMALL CELL LUNG CANCER METASTATIC
     Route: 048
     Dates: start: 20190924
  5. PEMBROLIZUMAB. [Suspect]
     Active Substance: PEMBROLIZUMAB
     Indication: NON-SMALL CELL LUNG CANCER METASTATIC
     Route: 041
     Dates: start: 20190924, end: 20190924

REACTIONS (1)
  - Pneumonia fungal [Recovered/Resolved]

NARRATIVE: CASE EVENT DATE: 20191004
